FAERS Safety Report 7376270-7 (Version None)
Quarter: 2011Q1

REPORT INFORMATION
  Report Type: 
  Country: None (occurrence: None)
  Receive Date: 20110325
  Receipt Date: 20110315
  Transmission Date: 20110831
  Serious: Yes (Death, Other)
  Sender: FDA-Public Use
  Company Number: US-WATSON-2011-03387

PATIENT
  Sex: Female

DRUGS (2)
  1. METOCLOPRAMIDE HYDROCHLORIDE [Suspect]
     Indication: PRODUCT USED FOR UNKNOWN INDICATION
     Dosage: UNK
     Route: 048
     Dates: start: 20041001, end: 20100501
  2. REGLAN [Suspect]
     Indication: PRODUCT USED FOR UNKNOWN INDICATION
     Dosage: UNK
     Route: 048
     Dates: start: 20041001, end: 20100501

REACTIONS (4)
  - EXTRAPYRAMIDAL DISORDER [None]
  - INCORRECT DRUG ADMINISTRATION DURATION [None]
  - DEATH [None]
  - TARDIVE DYSKINESIA [None]
